FAERS Safety Report 13305122 (Version 4)
Quarter: 2017Q2

REPORT INFORMATION
  Report Type: Spontaneous
  Country: DE (occurrence: DE)
  Receive Date: 20170308
  Receipt Date: 20170421
  Transmission Date: 20170830
  Serious: Yes (Other)
  Sender: FDA-Public Use
  Company Number: ALCN2017DE001564

PATIENT
  Age: 39 Year
  Sex: Male
  Weight: 56 kg

DRUGS (6)
  1. SIMBRINZA [Suspect]
     Active Substance: BRIMONIDINE TARTRATE\BRINZOLAMIDE
     Indication: GLAUCOMA
     Dosage: 1 GTT, BID (2X1)
     Route: 047
     Dates: start: 20160624, end: 201612
  2. L-THYROXINE [Concomitant]
     Active Substance: LEVOTHYROXINE
     Indication: AUTOIMMUNE THYROIDITIS
     Dosage: 5 DAYS 100 UG + 2 DAYS 125 UG
     Route: 065
  3. MONOPROST [Concomitant]
     Active Substance: LATANOPROST
     Indication: GLAUCOMA
     Dosage: UNK (1XIN THE EVENING)
     Route: 047
  4. SIMBRINZA [Suspect]
     Active Substance: BRIMONIDINE TARTRATE\BRINZOLAMIDE
     Dosage: 1 GTT, BID
     Route: 047
     Dates: end: 201701
  5. DORZOLAMID HEUMANN [Concomitant]
     Indication: GLAUCOMA
     Dosage: 2 X 20 MG/ML
     Route: 047
  6. L-THYROXINE [Concomitant]
     Active Substance: LEVOTHYROXINE
     Indication: HYPOTHYROIDISM
     Dosage: 5 DAYS 75 UG + 2 DAYS 100 UG
     Route: 065

REACTIONS (25)
  - Condition aggravated [Recovering/Resolving]
  - Weight increased [Recovering/Resolving]
  - Decreased activity [Recovering/Resolving]
  - Amnesia [Recovering/Resolving]
  - Anxiety [Recovering/Resolving]
  - Concomitant disease aggravated [Recovering/Resolving]
  - Depression [Recovering/Resolving]
  - Lethargy [Recovering/Resolving]
  - Somnolence [Recovering/Resolving]
  - Fatigue [Recovering/Resolving]
  - Autoimmune thyroiditis [Recovering/Resolving]
  - Bradycardia [Recovering/Resolving]
  - Asthenia [Recovering/Resolving]
  - Dizziness [Recovered/Resolved]
  - Back pain [Recovering/Resolving]
  - Dyschezia [Recovered/Resolved]
  - Hypothyroidism [Recovering/Resolving]
  - Dyspepsia [Recovering/Resolving]
  - Faeces hard [Recovering/Resolving]
  - Gastrointestinal disorder [Recovering/Resolving]
  - Memory impairment [Recovering/Resolving]
  - Peripheral coldness [Recovering/Resolving]
  - Gait disturbance [Recovered/Resolved]
  - Hyperhidrosis [Recovering/Resolving]
  - Constipation [Recovered/Resolved]

NARRATIVE: CASE EVENT DATE: 20160916
